FAERS Safety Report 9536616 (Version 1)
Quarter: 2013Q4

REPORT INFORMATION
  Report Type: Spontaneous
  Country: US (occurrence: None)
  Receive Date: 20130918
  Receipt Date: 20130918
  Transmission Date: 20140711
  Serious: Yes (Death)
  Sender: FDA-Public Use
  Company Number: None

PATIENT
  Age: 72 Year
  Sex: Female
  Weight: 61 kg

DRUGS (1)
  1. PROTAMINE SULFATE [Suspect]
     Indication: CAROTID ENDARTERECTOMY
     Dosage: 75 MG IV PUSH
     Dates: start: 20130806

REACTIONS (2)
  - Hypotension [None]
  - Pulmonary hypertension [None]
